FAERS Safety Report 18329825 (Version 1)
Quarter: 2020Q3

REPORT INFORMATION
  Report Type: Spontaneous
  Country: US (occurrence: US)
  Receive Date: 20200929
  Receipt Date: 20200929
  Transmission Date: 20201103
  Serious: No
  Sender: FDA-Public Use
  Company Number: None

PATIENT
  Age: 64 Year
  Sex: Male

DRUGS (1)
  1. ATRIPLA [Suspect]
     Active Substance: EFAVIRENZ\EMTRICITABINE\TENOFOVIR DISOPROXIL FUMARATE
     Dosage: ?          OTHER DOSE:600/200/300 MG;?
     Route: 048
     Dates: start: 20181205

REACTIONS (1)
  - Aortic aneurysm [None]

NARRATIVE: CASE EVENT DATE: 20200914
